FAERS Safety Report 5450033-1 (Version None)
Quarter: 2007Q3

REPORT INFORMATION
  Report Type: 
  Country: None (occurrence: None)
  Receive Date: 20070912
  Receipt Date: 20070911
  Transmission Date: 20080115
  Serious: Yes (Other)
  Sender: FDA-Public Use
  Company Number: IT-BRISTOL-MYERS SQUIBB COMPANY-13904131

PATIENT

DRUGS (3)
  1. IFOSFAMIDE [Suspect]
     Indication: NON-SMALL CELL LUNG CANCER METASTATIC
  2. PACLITAXEL [Concomitant]
     Indication: NON-SMALL CELL LUNG CANCER METASTATIC
  3. GEMCITABINE HCL [Concomitant]
     Indication: NON-SMALL CELL LUNG CANCER METASTATIC

REACTIONS (7)
  - ANAEMIA [None]
  - FATIGUE [None]
  - NAUSEA [None]
  - NEUROPATHY PERIPHERAL [None]
  - NEUTROPENIA [None]
  - THROMBOCYTOPENIA [None]
  - VOMITING [None]
